FAERS Safety Report 5771915-7 (Version None)
Quarter: 2008Q2

REPORT INFORMATION
  Report Type: 
  Country: None (occurrence: None)
  Receive Date: 20080601
  Receipt Date: 20080228
  Transmission Date: 20081010
  Serious: No
  Sender: FDA-Public Use
  Company Number: US200802006989

PATIENT
  Age: 61 Year
  Sex: Male
  Weight: 86.2 kg

DRUGS (9)
  1. BYETTA [Suspect]
     Indication: TYPE 2 DIABETES MELLITUS
     Dosage: 5 UG, 2/D, SUBCUTANEOUS
     Route: 058
     Dates: start: 20050101
  2. METFORMIN HCL [Concomitant]
  3. GLIPIZIDE [Concomitant]
  4. ACTOS /USA/ (PIOGLITAZONE HYDROCHLORIDE) [Concomitant]
  5. FOSINOPRIL SODIUM [Concomitant]
  6. ATENOLOL [Concomitant]
  7. CRESTOR [Concomitant]
  8. SPIRONOLACTONE [Concomitant]
  9. ASPIRIN [Concomitant]

REACTIONS (3)
  - ACCIDENTAL NEEDLE STICK [None]
  - PUNCTURE SITE HAEMORRHAGE [None]
  - WEIGHT DECREASED [None]
